FAERS Safety Report 6377115-4 (Version None)
Quarter: 2009Q3

REPORT INFORMATION
  Report Type: 
  Country: None (occurrence: None)
  Receive Date: 20090925
  Receipt Date: 20090922
  Transmission Date: 20100115
  Serious: Yes (Life-Threatening, Hospitalization)
  Sender: FDA-Public Use
  Company Number: FR-ASTRAZENECA-2009SE11398

PATIENT
  Age: 23932 Day
  Sex: Female
  Weight: 78 kg

DRUGS (5)
  1. SEROQUEL [Suspect]
     Route: 048
     Dates: end: 20090701
  2. CYMBALTA [Concomitant]
     Indication: DEPRESSION
  3. PREVISCAN [Concomitant]
     Indication: ATRIAL FIBRILLATION
  4. TAHOR [Concomitant]
     Indication: DYSLIPIDAEMIA
  5. MEDIATOR [Concomitant]
     Indication: TYPE 2 DIABETES MELLITUS

REACTIONS (1)
  - MYOCARDIAL INFARCTION [None]
